FAERS Safety Report 5976696-X (Version None)
Quarter: 2008Q4

REPORT INFORMATION
  Report Type: 
  Country: None (occurrence: None)
  Receive Date: 20081125
  Receipt Date: 20081114
  Transmission Date: 20090506
  Serious: Yes (Other)
  Sender: FDA-Public Use
  Company Number: 2008AP000180

PATIENT
  Age: 57 Year
  Sex: Male

DRUGS (6)
  1. CYCLOSPORINE [Suspect]
     Indication: IMMUNOSUPPRESSION
  2. PRAZIQUANTEL [Concomitant]
  3. ACYCLOVIR [Concomitant]
  4. MYCOPHENOLATE MOFETIL [Concomitant]
  5. PREDNISOLONE [Concomitant]
  6. TACROLIMUS [Concomitant]

REACTIONS (3)
  - CONDITION AGGRAVATED [None]
  - HEPATIC ENZYME INCREASED [None]
  - SCHISTOSOMIASIS [None]
